FAERS Safety Report 6512668-4 (Version None)
Quarter: 2009Q4

REPORT INFORMATION
  Report Type: 
  Country: None (occurrence: None)
  Receive Date: 20091217
  Receipt Date: 20091204
  Transmission Date: 20100525
  Serious: No
  Sender: FDA-Public Use
  Company Number: 2009120023

PATIENT

DRUGS (3)
  1. ONSOLIS [Suspect]
  2. EMBEDA (MORPHINE, NALTREXONE) [Concomitant]
  3. TAPENTADOL HYDROCHLORIDE [Concomitant]

REACTIONS (2)
  - DRUG PRESCRIBING ERROR [None]
  - INTERCEPTED MEDICATION ERROR [None]
